FAERS Safety Report 5228485-1 (Version None)
Quarter: 2007Q1

REPORT INFORMATION
  Report Type: 
  Country: None (occurrence: None)
  Receive Date: 20070131
  Receipt Date: 20070127
  Transmission Date: 20070707
  Serious: Yes (Death, Hospitalization)
  Sender: FDA-Public Use
  Company Number: 233995

PATIENT
  Age: 71 Year
  Sex: Male

DRUGS (11)
  1. AVASTIN [Suspect]
     Indication: NON-SMALL CELL LUNG CANCER
     Dosage: 1380 MG, QD, INTRAVENOUS
     Route: 042
     Dates: start: 20060602, end: 20061122
  2. ERLOTINIB (ERLOTINIB) TABLET [Suspect]
     Indication: NON-SMALL CELL LUNG CANCER
     Dosage: 150 MG, QD, ORAL
     Route: 048
     Dates: start: 20061102, end: 20061207
  3. IPRATROPIUM (IPRATROPIUM BROMIDE) [Concomitant]
  4. ASPIRIN [Concomitant]
  5. RAMIPRIL [Concomitant]
  6. ADALAT [Concomitant]
  7. DAFALGAN (ACETAMINOPHEN) [Concomitant]
  8. PANTOPRAZOLE SODIUM [Concomitant]
  9. HEPARIN [Concomitant]
  10. PASPERTIN (METOCLOPRAMIDE HYDROCHLORIDE) [Concomitant]
  11. FLU VACCINE (INFLUENZA VIRUS VACCINE) [Concomitant]

REACTIONS (12)
  - ABDOMINAL DISTENSION [None]
  - ABDOMINAL PAIN [None]
  - AGITATION [None]
  - CONSTIPATION [None]
  - COUGH [None]
  - CYANOSIS [None]
  - DYSPEPSIA [None]
  - DYSPNOEA [None]
  - FALL [None]
  - MUSCULOSKELETAL PAIN [None]
  - PLEURAL EFFUSION [None]
  - SUBILEUS [None]
